FAERS Safety Report 9912557 (Version 1)
Quarter: 2014Q1

REPORT INFORMATION
  Report Type: Spontaneous
  Country: AR (occurrence: None)
  Receive Date: 20140212
  Receipt Date: 20140212
  Transmission Date: 20141002
  Serious: Yes (Other)
  Sender: FDA-Public Use
  Company Number: VAL_02971_2014

PATIENT
  Sex: Female

DRUGS (1)
  1. BASOFORTINA [Suspect]
     Route: 048

REACTIONS (2)
  - Leiomyoma [None]
  - Haemorrhage [None]
